FAERS Safety Report 10023445 (Version 2)
Quarter: 2014Q2

REPORT INFORMATION
  Report Type: Report from Study
  Country: DE (occurrence: DE)
  Receive Date: 20140320
  Receipt Date: 20140418
  Transmission Date: 20141212
  Serious: Yes (Death, Hospitalization)
  Sender: FDA-Public Use
  Company Number: DE-ROCHE-1364245

PATIENT
  Age: 77 Year
  Sex: Male
  Weight: 74 kg

DRUGS (4)
  1. RITUXIMAB [Suspect]
     Indication: RHEUMATOID ARTHRITIS
     Route: 042
     Dates: start: 20130201, end: 20130917
  2. PREDNISOLON [Concomitant]
     Indication: RHEUMATOID ARTHRITIS
     Route: 048
  3. FALITHROM [Concomitant]
     Indication: RHEUMATOID ARTHRITIS
     Route: 048
  4. NOVALGIN (GERMANY) [Concomitant]
     Indication: RHEUMATOID ARTHRITIS
     Route: 048

REACTIONS (2)
  - Respiratory failure [Fatal]
  - Pneumonia [Fatal]
